FAERS Safety Report 6739185-0 (Version None)
Quarter: 2010Q2

REPORT INFORMATION
  Report Type: 
  Country: None (occurrence: None)
  Receive Date: 20100525
  Receipt Date: 20100309
  Transmission Date: 20101027
  Serious: No
  Sender: FDA-Public Use
  Company Number: A0847342A

PATIENT
  Age: 83 Year
  Sex: Male

DRUGS (2)
  1. VERAMYST [Suspect]
     Dosage: 2SPR PER DAY
     Route: 045
     Dates: end: 20100225
  2. NO CONCURRENT MEDICATION [Concomitant]

REACTIONS (1)
  - EPISTAXIS [None]
